FAERS Safety Report 15440000 (Version 1)
Quarter: 2018Q3

REPORT INFORMATION
  Report Type: Spontaneous
  Country: US (occurrence: US)
  Receive Date: 20180925
  Receipt Date: 20180925
  Transmission Date: 20181010
  Serious: Yes (Hospitalization, Disabling)
  Sender: FDA-Public Use
  Company Number: None

PATIENT
  Age: 43 Year
  Sex: Male
  Weight: 75.6 kg

DRUGS (5)
  1. ALPRAZOLAM. [Suspect]
     Active Substance: ALPRAZOLAM
     Indication: ANXIETY
     Dosage: ?          QUANTITY:1 TABLET(S);?
     Route: 048
     Dates: start: 20120601, end: 20171105
  2. BENADRYL [Concomitant]
     Active Substance: DIPHENHYDRAMINE HYDROCHLORIDE
  3. VITAMIN B COMPLEX [Concomitant]
     Active Substance: CYANOCOBALAMIN\DEXPANTHENOL\NIACINAMIDE\PYRIDOXINE HYDROCHLORIDE\RIBOFLAVIN 5^-PHOSPHATE SODIUM\THIAMINE HYDROCHLORIDE\VITAMIN B COMPLEX
  4. CBD HEMP OIL [Concomitant]
     Active Substance: CANNABIDIOL\CANNABIS SATIVA SEED OIL
  5. VITAMIN COMPLEX [Concomitant]

REACTIONS (13)
  - Withdrawal syndrome [None]
  - Supraventricular tachycardia [None]
  - Weight decreased [None]
  - Anxiety [None]
  - Mental disorder [None]
  - Insomnia [None]
  - Balance disorder [None]
  - Depression [None]
  - Panic attack [None]
  - Chest pain [None]
  - Impaired driving ability [None]
  - Impaired work ability [None]
  - Neuralgia [None]

NARRATIVE: CASE EVENT DATE: 20120112
